FAERS Safety Report 5899827-9 (Version None)
Quarter: 2008Q3

REPORT INFORMATION
  Report Type: 
  Country: None (occurrence: None)
  Receive Date: 20080926
  Receipt Date: 20080922
  Transmission Date: 20090109
  Serious: Yes (Hospitalization)
  Sender: FDA-Public Use
  Company Number: JP-AVENTIS-200812985JP

PATIENT
  Age: 56 Year
  Sex: Male

DRUGS (2)
  1. ALLEGRA [Suspect]
     Route: 048
  2. MUCOSTA [Concomitant]

REACTIONS (1)
  - SHOCK [None]
